FAERS Safety Report 23691644 (Version 2)
Quarter: 2024Q2

REPORT INFORMATION
  Report Type: Other
  Country: JP (occurrence: None)
  Receive Date: 20240401
  Receipt Date: 20240521
  Transmission Date: 20240716
  Serious: Yes (Other)
  Sender: FDA-Public Use
  Company Number: US-ROCHE-2516146

PATIENT

DRUGS (2)
  1. RITUXAN [Suspect]
     Active Substance: RITUXIMAB
     Indication: Follicular lymphoma
     Dosage: DAY 1
     Route: 041
  2. BENDAMUSTINE [Suspect]
     Active Substance: BENDAMUSTINE
     Indication: Follicular lymphoma
     Dosage: ON DAYS 1 AND 2 (OR DAYS 2 AND 3) EVERY CYCLE
     Route: 065

REACTIONS (33)
  - Neutropenia [Unknown]
  - Lymphopenia [Unknown]
  - Leukopenia [Unknown]
  - Thrombocytopenia [Unknown]
  - Anaemia [Unknown]
  - Appendicitis [Unknown]
  - Hepatitis B reactivation [Unknown]
  - Hypernatraemia [Unknown]
  - Hypokalaemia [Unknown]
  - Hypocalcaemia [Unknown]
  - Malaise [Unknown]
  - Nausea [Unknown]
  - Diarrhoea [Unknown]
  - Dermatitis acneiform [Unknown]
  - Herpes zoster [Unknown]
  - Hypoalbuminaemia [Unknown]
  - Blood alkaline phosphatase increased [Unknown]
  - Alanine aminotransferase increased [Unknown]
  - Aspartate aminotransferase increased [Unknown]
  - Blood bilirubin increased [Unknown]
  - Blood creatinine increased [Unknown]
  - Hyponatraemia [Unknown]
  - Hyperkalaemia [Unknown]
  - Hypercalcaemia [Unknown]
  - Hyperglycaemia [Unknown]
  - Vomiting [Unknown]
  - Constipation [Unknown]
  - Rash maculo-papular [Unknown]
  - Urticaria [Unknown]
  - Phlebitis [Unknown]
  - Vascular pain [Unknown]
  - Pyrexia [Unknown]
  - Infusion related reaction [Unknown]
